FAERS Safety Report 5038793-5 (Version None)
Quarter: 2006Q2

REPORT INFORMATION
  Report Type: 
  Country: None (occurrence: None)
  Receive Date: 20060601
  Receipt Date: 20060407
  Transmission Date: 20061013
  Serious: No
  Sender: FDA-Public Use
  Company Number: 2005PV004021

PATIENT
  Age: 50 Year
  Sex: Male

DRUGS (2)
  1. BYETTA [Suspect]
     Indication: DIABETES MELLITUS NON-INSULIN-DEPENDENT
     Dosage: 5 MCG;QD;SC
     Route: 058
     Dates: start: 20051001
  2. GLUCOPHAGE [Concomitant]

REACTIONS (8)
  - ASTHENIA [None]
  - BLOOD GLUCOSE DECREASED [None]
  - CONSTIPATION [None]
  - FATIGUE [None]
  - FEELING JITTERY [None]
  - HYPOAESTHESIA [None]
  - NERVOUSNESS [None]
  - PHOBIA [None]
